FAERS Safety Report 16862555 (Version 1)
Quarter: 2019Q3

REPORT INFORMATION
  Report Type: Spontaneous
  Country: US (occurrence: US)
  Receive Date: 20190927
  Receipt Date: 20190927
  Transmission Date: 20191005
  Serious: Yes (Hospitalization)
  Sender: FDA-Public Use
  Company Number: US-VERTEX PHARMACEUTICALS-2019-009337

PATIENT

DRUGS (1)
  1. SYMDEKO [Suspect]
     Active Substance: IVACAFTOR\TEZACAFTOR
     Indication: CYSTIC FIBROSIS
     Route: 048

REACTIONS (9)
  - Drug interaction [Unknown]
  - Nausea [Unknown]
  - Haemoptysis [Unknown]
  - Liver function test increased [Unknown]
  - Mental disorder [Unknown]
  - Blood glucose abnormal [Unknown]
  - Vomiting [Unknown]
  - Abnormal faeces [Unknown]
  - Infective pulmonary exacerbation of cystic fibrosis [Unknown]
